FAERS Safety Report 5048578-1 (Version None)
Quarter: 2006Q3

REPORT INFORMATION
  Report Type: 
  Country: None (occurrence: None)
  Receive Date: 20060705
  Receipt Date: 20060614
  Transmission Date: 20061208
  Serious: Yes (Other)
  Sender: FDA-Public Use
  Company Number: 530#5#2006-00028

PATIENT
  Age: 66 Year
  Sex: Male

DRUGS (3)
  1. . [Suspect]
  2. PROVASTATIN 40 UG (ALPROSTADIL (PAOD)) [Suspect]
     Indication: PERIPHERAL ISCHAEMIA
     Dosage: 2 X 40 UG PER DAY
     Route: 041
     Dates: start: 20040719, end: 20040720
  3. GLYBURIDE [Concomitant]

REACTIONS (1)
  - GASTROINTESTINAL HAEMORRHAGE [None]
